FAERS Safety Report 5523868-4 (Version None)
Quarter: 2007Q4

REPORT INFORMATION
  Report Type: 
  Country: None (occurrence: None)
  Receive Date: 20071121
  Receipt Date: 20071112
  Transmission Date: 20080405
  Serious: Yes (Hospitalization)
  Sender: FDA-Public Use
  Company Number: US-SHR-US-2007-037846

PATIENT
  Age: 47 Year
  Sex: Female

DRUGS (11)
  1. BETASERON [Suspect]
     Indication: RELAPSING-REMITTING MULTIPLE SCLEROSIS
     Dosage: 2 MIU, EVERY 2D
     Route: 058
     Dates: start: 20070919
  2. BETASERON [Suspect]
     Dosage: 4 MIU, EVERY 2D
     Route: 058
  3. BETASERON [Suspect]
     Dosage: 8 MIU, EVERY 2D
     Route: 058
  4. KEFLEX [Concomitant]
     Dosage: 500 MG, 3X/DAY
  5. DIFLUCAN [Concomitant]
     Dosage: 150 MG, 1X/DAY
  6. OXYCONTIN [Concomitant]
     Dosage: 10 MG, 2X/DAY
  7. PERCOCET [Concomitant]
     Dosage: UNK, 2X/DAY
  8. NAPROXEN [Concomitant]
     Indication: PREMEDICATION
     Dosage: UNK, EVERY 2D
  9. ZOLOFT [Concomitant]
     Dosage: 1.5 PILLS, 1X/DAY
  10. OMEPRAZOLE [Concomitant]
  11. ^PROFERIN TAB^ [Concomitant]
     Dosage: 1 UNK, 2X/DAY

REACTIONS (4)
  - ELECTIVE SURGERY [None]
  - INJECTION SITE ERYTHEMA [None]
  - INJECTION SITE SWELLING [None]
  - MENSTRUAL DISORDER [None]
